FAERS Safety Report 8584476-4 (Version None)
Quarter: 2012Q3

REPORT INFORMATION
  Report Type: 
  Country: None (occurrence: None)
  Receive Date: 20120810
  Receipt Date: 20120808
  Transmission Date: 20120928
  Serious: No
  Sender: FDA-Public Use
  Company Number: US-PFIZER INC-2012194461

PATIENT
  Age: 68 Year
  Sex: Female
  Weight: 114.29 kg

DRUGS (7)
  1. PANTOPRAZOLE SODIUM [Concomitant]
     Indication: FLATULENCE
     Dosage: 40 MG, DAILY
  2. CLONAZEPAM [Concomitant]
     Indication: NERVOUSNESS
     Dosage: 2 MG, DAILY
  3. TRIAMTERENE AND HYDROCHLOROTHIAZIDE [Concomitant]
     Indication: HYPERTENSION
     Dosage: ^37.5 MG^ DAILY
  4. POTASSIUM [Concomitant]
     Indication: DIURETIC THERAPY
     Dosage: 10 MG, DAILY
  5. METFORMIN HYDROCHLORIDE [Concomitant]
     Indication: DIABETES MELLITUS
     Dosage: 500 MG, DAILY
  6. PRISTIQ [Suspect]
     Dosage: 50 MG, DAILY
     Route: 048
     Dates: start: 20120101
  7. FUROSEMIDE [Concomitant]
     Indication: DIURETIC THERAPY
     Dosage: 40 MG, DAILY

REACTIONS (3)
  - ANXIETY [None]
  - NERVOUSNESS [None]
  - MIDDLE INSOMNIA [None]
